FAERS Safety Report 20868399 (Version 1)
Quarter: 2022Q2

REPORT INFORMATION
  Report Type: Report from Study
  Country: US (occurrence: US)
  Receive Date: 20220524
  Receipt Date: 20220524
  Transmission Date: 20220721
  Serious: Yes (Other)
  Sender: FDA-Public Use
  Company Number: US-GILEAD-2022-0582842

PATIENT
  Age: 37 Year
  Sex: Male

DRUGS (1)
  1. EFAVIRENZ\EMTRICITABINE\TENOFOVIR DISOPROXIL FUMARATE [Suspect]
     Active Substance: EFAVIRENZ\EMTRICITABINE\TENOFOVIR DISOPROXIL FUMARATE
     Indication: HIV infection
     Dosage: 1100 MG, QD
     Route: 048
     Dates: start: 201407, end: 2018

REACTIONS (2)
  - Bladder cancer [Recovered/Resolved]
  - Hodgkin^s disease stage III [Recovered/Resolved]

NARRATIVE: CASE EVENT DATE: 20160101
